FAERS Safety Report 8302007-0 (Version None)
Quarter: 2012Q2

REPORT INFORMATION
  Report Type: 
  Country: None (occurrence: None)
  Receive Date: 20120420
  Receipt Date: 20120316
  Transmission Date: 20120825
  Serious: Yes (Hospitalization, Congenital Anomaly, Other)
  Sender: FDA-Public Use
  Company Number: JP-ASTRAZENECA-2011SE42654

PATIENT
  Age: 0 Year
  Sex: Female
  Weight: 2 kg

DRUGS (5)
  1. COTRIM [Concomitant]
     Route: 064
     Dates: end: 20101216
  2. CANDESARTAN CILEXETIL [Suspect]
     Route: 064
     Dates: start: 20100114, end: 20101216
  3. ESTRADIOL [Concomitant]
     Route: 064
     Dates: end: 20101216
  4. MEDROXYPROGESTERONE ACETATE [Concomitant]
     Route: 064
     Dates: end: 20101216
  5. TACROLIMUS [Concomitant]
     Route: 064
     Dates: end: 20101216

REACTIONS (3)
  - SKULL MALFORMATION [None]
  - RESPIRATORY DISTRESS [None]
  - RENAL IMPAIRMENT [None]
